FAERS Safety Report 6780991-4 (Version None)
Quarter: 2010Q2

REPORT INFORMATION
  Report Type: 
  Country: None (occurrence: None)
  Receive Date: 20100617
  Receipt Date: 20100617
  Transmission Date: 20101027
  Serious: Yes (Death)
  Sender: FDA-Public Use
  Company Number: None

PATIENT
  Age: 54 Year
  Sex: Male
  Weight: 59 kg

DRUGS (14)
  1. GAMMAGARD LIQUID [Suspect]
     Route: 042
  2. NITROSTAT [Concomitant]
  3. CATAPRES [Concomitant]
  4. MORPHINE [Concomitant]
  5. DIFLUCAN [Concomitant]
  6. ISORDIL [Concomitant]
  7. LEVAQUIN [Concomitant]
  8. LOPRESSOR [Concomitant]
  9. SOLU-CORTEF [Concomitant]
  10. FLAGYL [Concomitant]
  11. ATROPINE [Concomitant]
  12. EPINEPHRINE [Concomitant]
  13. CALCIUM CHLORIDE [Concomitant]
  14. SODIUM BICARB [Concomitant]

REACTIONS (5)
  - ABDOMINAL PAIN [None]
  - CARDIO-RESPIRATORY ARREST [None]
  - FEELING ABNORMAL [None]
  - HYPERTENSION [None]
  - THROMBOCYTOPENIA [None]
